FAERS Safety Report 5367691-2 (Version None)
Quarter: 2007Q2

REPORT INFORMATION
  Report Type: 
  Country: None (occurrence: None)
  Receive Date: 20070622
  Receipt Date: 20070402
  Transmission Date: 20071010
  Serious: No
  Sender: FDA-Public Use
  Company Number: US-ASTRAZENECA-2007UW06602

PATIENT
  Age: 50 Year
  Sex: Female

DRUGS (1)
  1. PULMICORT [Suspect]
     Indication: ASTHMA
     Route: 055

REACTIONS (4)
  - DYSPNOEA [None]
  - HYPERSENSITIVITY [None]
  - HYPOAESTHESIA [None]
  - NERVOUSNESS [None]
